FAERS Safety Report 25601150 (Version 1)
Quarter: 2025Q3

REPORT INFORMATION
  Report Type: Spontaneous
  Country: PE (occurrence: PE)
  Receive Date: 20250724
  Receipt Date: 20250724
  Transmission Date: 20251020
  Serious: Yes (Other)
  Sender: RANBAXY
  Company Number: PE-SUN PHARMACEUTICAL INDUSTRIES LTD-2025R1-517920

PATIENT
  Sex: Male

DRUGS (1)
  1. ATORVASTATIN\EZETIMIBE [Suspect]
     Active Substance: ATORVASTATIN\EZETIMIBE
     Indication: Blood triglycerides increased
     Route: 048

REACTIONS (7)
  - Head discomfort [Recovering/Resolving]
  - Balance disorder [Recovering/Resolving]
  - Tachycardia [Recovering/Resolving]
  - Tinnitus [Recovering/Resolving]
  - Chest discomfort [Recovering/Resolving]
  - Dizziness [Recovering/Resolving]
  - Respiration abnormal [Recovering/Resolving]
